FAERS Safety Report 9779872 (Version 3)
Quarter: 2014Q1

REPORT INFORMATION
  Report Type: Spontaneous
  Country: US (occurrence: US)
  Receive Date: 20131223
  Receipt Date: 20140123
  Transmission Date: 20141002
  Serious: No
  Sender: FDA-Public Use
  Company Number: US-009507513-1312USA008261

PATIENT
  Sex: Female
  Weight: 53.61 kg

DRUGS (3)
  1. NEXPLANON [Suspect]
     Indication: CONTRACEPTION
     Dosage: 1 DF, ONCE
     Route: 059
     Dates: start: 20090928
  2. ORTHO EVRA [Concomitant]
     Indication: CONTRACEPTION
     Dosage: PATCH
  3. MOTRIN [Concomitant]

REACTIONS (3)
  - Device dislocation [Unknown]
  - Medical device complication [Unknown]
  - Drug dose omission [Unknown]
